FAERS Safety Report 5308456-7 (Version None)
Quarter: 2007Q2

REPORT INFORMATION
  Report Type: 
  Country: None (occurrence: None)
  Receive Date: 20070426
  Receipt Date: 20070419
  Transmission Date: 20071010
  Serious: Yes (Death)
  Sender: FDA-Public Use
  Company Number: BE-ROCHE-493865

PATIENT
  Age: 24 Year
  Sex: Male
  Weight: 76 kg

DRUGS (6)
  1. VALIUM [Suspect]
     Indication: DRUG USE FOR UNKNOWN INDICATION
     Route: 048
  2. METHADONE HCL [Suspect]
     Indication: DRUG USE FOR UNKNOWN INDICATION
     Route: 048
  3. CETRIZIN [Concomitant]
     Route: 048
  4. DOMINAL [Concomitant]
     Route: 048
  5. TREMBLEX [Concomitant]
     Route: 048
  6. PROTHIADEN [Concomitant]

REACTIONS (2)
  - DRUG TOXICITY [None]
  - OVERDOSE [None]
